FAERS Safety Report 4519910-X (Version None)
Quarter: 2004Q4

REPORT INFORMATION
  Report Type: 
  Country: None (occurrence: None)
  Receive Date: 20041202
  Receipt Date: 20041202
  Transmission Date: 20050328
  Serious: Yes (Hospitalization)
  Sender: FDA-Public Use
  Company Number: None

PATIENT
  Age: 63 Year
  Sex: Male
  Weight: 57.7 kg

DRUGS (1)
  1. LIPITOR [Suspect]
     Indication: HYPERLIPIDAEMIA
     Dosage: 10MG  DAILY   ORAL
     Route: 048

REACTIONS (4)
  - BACK PAIN [None]
  - CHEST PAIN [None]
  - CONFUSIONAL STATE [None]
  - MYOSITIS [None]
